FAERS Safety Report 9230037 (Version 1)
Quarter: 2013Q2

REPORT INFORMATION
  Report Type: Spontaneous
  Country: US (occurrence: US)
  Receive Date: 20130415
  Receipt Date: 20130415
  Transmission Date: 20140414
  Serious: Yes (Other)
  Sender: FDA-Public Use
  Company Number: US-009507513-1304USA005630

PATIENT
  Sex: Male

DRUGS (2)
  1. REMERON [Suspect]
  2. WELLBUTRIN XL [Suspect]

REACTIONS (3)
  - Lung neoplasm malignant [Unknown]
  - Renal failure [Unknown]
  - Diabetes mellitus [Unknown]
